FAERS Safety Report 5153600-8 (Version None)
Quarter: 2006Q4

REPORT INFORMATION
  Report Type: 
  Country: None (occurrence: None)
  Receive Date: 20061113
  Receipt Date: 20061102
  Transmission Date: 20070319
  Serious: Yes (Other)
  Sender: FDA-Public Use
  Company Number: 2006-02779

PATIENT
  Age: 73 Year
  Sex: Male
  Weight: 70 kg

DRUGS (6)
  1. VELCADE [Suspect]
     Indication: PLASMACYTOMA
     Dosage: 2.00 MG, INTRAVENOUS
     Route: 042
     Dates: start: 20060919, end: 20061020
  2. DEXAMETHASONE TAB [Concomitant]
  3. CLODRONATE DISODIUM (CLODRONATE DISODIUM) [Concomitant]
  4. GABAPENTIN [Concomitant]
  5. MST (MORPHINE SULFATE) [Concomitant]
  6. ORAMORPH SR [Concomitant]

REACTIONS (3)
  - DISEASE PROGRESSION [None]
  - DRUG INEFFECTIVE [None]
  - GENERAL PHYSICAL HEALTH DETERIORATION [None]
